FAERS Safety Report 17207770 (Version 1)
Quarter: 2019Q4

REPORT INFORMATION
  Report Type: Spontaneous
  Country: US (occurrence: US)
  Receive Date: 20191205
  Receipt Date: 20191205
  Transmission Date: 20200122
  Serious: No
  Sender: FDA-Public Use
  Company Number: None

PATIENT
  Age: 59 Year
  Sex: Male

DRUGS (2)
  1. ABIRATERONE 250MG APOTEX [Suspect]
     Active Substance: ABIRATERONE
     Indication: PROSTATE CANCER
  2. ABIRATERONE 250MG APOTEX [Suspect]
     Active Substance: ABIRATERONE
     Indication: METASTASES TO BONE
     Dosage: ?          OTHER FREQUENCY:4 PER DAY;?
     Route: 048
     Dates: start: 201910

REACTIONS (1)
  - Pain [None]

NARRATIVE: CASE EVENT DATE: 20191202
